FAERS Safety Report 15260350 (Version 3)
Quarter: 2018Q3

REPORT INFORMATION
  Report Type: Spontaneous
  Country: ES (occurrence: ES)
  Receive Date: 20180809
  Receipt Date: 20180817
  Transmission Date: 20181010
  Serious: Yes (Life-Threatening, Other)
  Sender: FDA-Public Use
  Company Number: ES-PFIZER INC-2018320031

PATIENT
  Age: 50 Year
  Sex: Female

DRUGS (10)
  1. AMIODARONE HCL [Suspect]
     Active Substance: AMIODARONE HYDROCHLORIDE
     Indication: CARDIAC DISORDER
     Dosage: UNK
     Route: 065
  2. RITONAVIR. [Concomitant]
     Active Substance: RITONAVIR
     Dosage: 100 MG, 2X/DAY
  3. DOLUTEGRAVIR [Suspect]
     Active Substance: DOLUTEGRAVIR
     Dosage: 50 MG, 1X/DAY
  4. DACLATASVIR. [Interacting]
     Active Substance: DACLATASVIR
     Indication: ANTIVIRAL TREATMENT
     Dosage: UNK
     Route: 065
  5. RALTEGRAVIR. [Concomitant]
     Active Substance: RALTEGRAVIR
     Dosage: 400 MG, UNK
  6. SOFOSBUVIR [Interacting]
     Active Substance: SOFOSBUVIR
     Indication: ANTIVIRAL TREATMENT
     Dosage: UNK
     Route: 065
  7. SIMEPREVIR [Interacting]
     Active Substance: SIMEPREVIR
     Indication: ANTIVIRAL TREATMENT
     Dosage: UNK
     Route: 065
  8. LEDIPASVIR [Interacting]
     Active Substance: LEDIPASVIR
     Indication: ANTIVIRAL TREATMENT
     Dosage: UNK
     Route: 065
  9. DARUNAVIR [Concomitant]
     Active Substance: DARUNAVIR
     Dosage: 600 MG, 2X/DAY
  10. DARUNAVIR [Concomitant]
     Active Substance: DARUNAVIR
     Dosage: 800 MG/M2, 1X/DAY

REACTIONS (2)
  - Bradycardia [Unknown]
  - Drug interaction [Unknown]
